FAERS Safety Report 9743043 (Version 2)
Quarter: 2014Q1

REPORT INFORMATION
  Report Type: Spontaneous
  Country: US (occurrence: US)
  Receive Date: 20131210
  Receipt Date: 20140107
  Transmission Date: 20141002
  Serious: Yes (Other)
  Sender: FDA-Public Use
  Company Number: US-TEVA-449479USA

PATIENT
  Age: 25 Year
  Sex: Female

DRUGS (1)
  1. PARAGARD 380A [Suspect]
     Indication: CONTRACEPTION
     Route: 015
     Dates: end: 20131205

REACTIONS (4)
  - Device dislocation [Recovered/Resolved]
  - Dyspareunia [Unknown]
  - Device expulsion [Recovered/Resolved]
  - Device malfunction [Unknown]
